FAERS Safety Report 5427526-6 (Version None)
Quarter: 2007Q3

REPORT INFORMATION
  Report Type: 
  Country: None (occurrence: None)
  Receive Date: 20070824
  Receipt Date: 20070824
  Transmission Date: 20080115
  Serious: No
  Sender: FDA-Public Use
  Company Number: None

PATIENT
  Age: 29 Year
  Sex: Female
  Weight: 58.9676 kg

DRUGS (4)
  1. MIRAPEX [Suspect]
     Indication: RESTLESS LEGS SYNDROME
     Dosage: 1/2-1 TABLET ONCE DAILY PO
     Route: 048
     Dates: start: 20070718, end: 20070823
  2. BENADRYL [Concomitant]
  3. CLARITIN [Concomitant]
  4. SINGULAIR [Concomitant]

REACTIONS (3)
  - FEELING OF BODY TEMPERATURE CHANGE [None]
  - NAUSEA [None]
  - PYREXIA [None]
